FAERS Safety Report 7646958-9 (Version None)
Quarter: 2011Q3

REPORT INFORMATION
  Report Type: 
  Country: None (occurrence: None)
  Receive Date: 20110801
  Receipt Date: 20110720
  Transmission Date: 20111222
  Serious: Yes (Hospitalization)
  Sender: FDA-Public Use
  Company Number: JP-JNJFOC-20110709656

PATIENT
  Sex: Male
  Weight: 50 kg

DRUGS (43)
  1. CLADRIBINE [Suspect]
     Route: 041
     Dates: start: 20050309, end: 20050309
  2. LASIX [Concomitant]
     Route: 048
     Dates: start: 20050303, end: 20050309
  3. LASIX [Concomitant]
     Indication: PROPHYLAXIS
     Route: 048
     Dates: start: 20050303, end: 20050309
  4. CONCENTRATED RED CELLS [Concomitant]
     Dosage: 10 LU
     Route: 041
     Dates: start: 20050408, end: 20050408
  5. NEUTROGIN [Concomitant]
     Route: 041
     Dates: start: 20050720, end: 20050720
  6. RITUXAN [Concomitant]
     Route: 041
     Dates: start: 20050527, end: 20050527
  7. ALLOPURINOL [Concomitant]
     Indication: PROPHYLAXIS
     Route: 048
     Dates: start: 20050325, end: 20050331
  8. CLADRIBINE [Suspect]
     Indication: B-CELL LYMPHOMA
     Route: 041
     Dates: start: 20070507, end: 20070513
  9. CLADRIBINE [Suspect]
     Route: 041
     Dates: start: 20050526, end: 20050526
  10. CLADRIBINE [Suspect]
     Route: 041
     Dates: start: 20050520, end: 20050525
  11. LASIX [Concomitant]
     Indication: POLYURIA
     Route: 048
     Dates: start: 20050520, end: 20050526
  12. ITRACONAZOLE [Concomitant]
     Route: 048
     Dates: start: 20050303, end: 20050309
  13. FAMOTIDINE [Concomitant]
     Route: 048
     Dates: start: 20050620, end: 20050623
  14. CLADRIBINE [Suspect]
     Route: 041
     Dates: start: 20050620, end: 20050623
  15. LASIX [Concomitant]
     Route: 048
     Dates: start: 20050520, end: 20050526
  16. LASIX [Concomitant]
     Route: 048
     Dates: start: 20050325, end: 20050325
  17. ITRACONAZOLE [Concomitant]
     Indication: ANTIFUNGAL PROPHYLAXIS
     Route: 048
     Dates: start: 20050520, end: 20050526
  18. MAGNESIUM OXIDE [Concomitant]
     Indication: CONSTIPATION PROPHYLAXIS
     Route: 048
  19. FAMOTIDINE [Concomitant]
     Indication: GASTROINTESTINAL ULCER
     Route: 048
     Dates: start: 20050520, end: 20050526
  20. ALLOPURINOL [Concomitant]
     Route: 048
     Dates: start: 20050303, end: 20050309
  21. LASIX [Concomitant]
     Route: 048
     Dates: start: 20050325, end: 20050325
  22. LASIX [Concomitant]
     Route: 048
     Dates: start: 20050620, end: 20050623
  23. LASIX [Concomitant]
     Route: 048
     Dates: start: 20050620, end: 20050623
  24. GRAN [Concomitant]
     Route: 058
     Dates: start: 20050602, end: 20050602
  25. CONCENTRATED RED CELLS [Concomitant]
     Dosage: 2 LU
     Route: 041
     Dates: start: 20050331, end: 20050331
  26. CLADRIBINE [Suspect]
     Route: 041
     Dates: start: 20050325, end: 20050330
  27. SENNOSIDE [Concomitant]
     Indication: CONSTIPATION PROPHYLAXIS
     Route: 048
     Dates: start: 20050307, end: 20050309
  28. EBASTINE [Concomitant]
     Indication: PRURITUS
     Route: 048
     Dates: start: 20050325, end: 20050331
  29. GRAN [Concomitant]
     Route: 058
     Dates: start: 20050727, end: 20050727
  30. GRAN [Concomitant]
     Route: 058
     Dates: start: 20050530, end: 20050531
  31. GRAN [Concomitant]
     Route: 058
     Dates: start: 20050405, end: 20050406
  32. CLADRIBINE [Suspect]
     Route: 041
     Dates: start: 20070313, end: 20070513
  33. CLADRIBINE [Suspect]
     Route: 041
     Dates: start: 20050303, end: 20050308
  34. RITUXAN [Concomitant]
     Route: 041
     Dates: start: 20050413, end: 20050413
  35. ITRACONAZOLE [Concomitant]
     Route: 048
     Dates: start: 20050325, end: 20050325
  36. ADONA (AC-17) [Concomitant]
     Indication: HAEMORRHAGE PROPHYLAXIS
     Route: 048
     Dates: start: 20050328, end: 20050331
  37. CONCENTRATED RED CELLS [Concomitant]
     Dosage: 4 LU
     Route: 041
     Dates: start: 20050207, end: 20050207
  38. CLADRIBINE [Suspect]
     Route: 041
     Dates: start: 20050331, end: 20050331
  39. RITUXAN [Concomitant]
     Indication: B-CELL LYMPHOMA
     Route: 041
     Dates: start: 20050624, end: 20050624
  40. ITRACONAZOLE [Concomitant]
     Route: 048
     Dates: start: 20050620, end: 20050623
  41. GRAN [Concomitant]
     Route: 058
     Dates: start: 20050314, end: 20050315
  42. GRAN [Concomitant]
     Route: 058
     Dates: start: 20050722, end: 20050722
  43. CONCENTRATED RED CELLS [Concomitant]
     Dosage: 2 LU
     Route: 041
     Dates: start: 20050408, end: 20050408

REACTIONS (6)
  - DYSGEUSIA [None]
  - BLOOD URIC ACID INCREASED [None]
  - BLOOD LACTATE DEHYDROGENASE INCREASED [None]
  - PANCYTOPENIA [None]
  - BENIGN PROSTATIC HYPERPLASIA [None]
  - STOMATITIS [None]
